FAERS Safety Report 6738583-9 (Version None)
Quarter: 2010Q2

REPORT INFORMATION
  Report Type: 
  Country: None (occurrence: None)
  Receive Date: 20100524
  Receipt Date: 20100515
  Transmission Date: 20101027
  Serious: Yes (Other)
  Sender: FDA-Public Use
  Company Number: CN-PFIZER INC-2010061173

PATIENT
  Age: 60 Year
  Sex: Male

DRUGS (1)
  1. LIPITOR [Suspect]
     Indication: ANGINA PECTORIS
     Dosage: 20 MG, 1X/DAY
     Route: 048
     Dates: start: 20100417, end: 20100430

REACTIONS (3)
  - BLOOD BILIRUBIN INCREASED [None]
  - CREATININE RENAL CLEARANCE DECREASED [None]
  - TROPONIN T INCREASED [None]
